FAERS Safety Report 18320045 (Version 1)
Quarter: 2020Q3

REPORT INFORMATION
  Report Type: Spontaneous
  Country: GB (occurrence: GB)
  Receive Date: 20200929
  Receipt Date: 20200929
  Transmission Date: 20201103
  Serious: Yes (Other)
  Sender: FDA-Public Use
  Company Number: GB-AMGEN-GBRSP2020155061

PATIENT
  Age: 21 Year
  Sex: Male

DRUGS (10)
  1. CISPLATIN. [Suspect]
     Active Substance: CISPLATIN
     Indication: HUMAN CHORIONIC GONADOTROPIN INCREASED
  2. GUADECITABINE [Suspect]
     Active Substance: GUADECITABINE
     Indication: HUMAN CHORIONIC GONADOTROPIN INCREASED
  3. GEMCITABINE. [Suspect]
     Active Substance: GEMCITABINE
     Indication: TESTICULAR GERM CELL TUMOUR MIXED
     Dosage: 1000 MILLIGRAM/SQ. METER, CYCLICAL (D8 + 15) Q21
     Route: 042
     Dates: start: 2017
  4. FILGRASTIM [Suspect]
     Active Substance: FILGRASTIM
     Indication: PROPHYLAXIS
     Dosage: 300 MICROGRAM, QD (D15?21)
     Route: 058
     Dates: start: 2017
  5. GUADECITABINE [Suspect]
     Active Substance: GUADECITABINE
     Indication: METASTASES TO LUNG
  6. GUADECITABINE [Suspect]
     Active Substance: GUADECITABINE
     Indication: TESTICULAR GERM CELL TUMOUR MIXED
     Dosage: 20 MILLIGRAM/SQ. METER, CYCLICAL (DAY 1?5) Q21
     Route: 058
     Dates: start: 2017
  7. CISPLATIN. [Suspect]
     Active Substance: CISPLATIN
     Indication: TESTICULAR GERM CELL TUMOUR MIXED
     Dosage: 70 MILLIGRAM/SQ. METER, CYCLICAL (D8) Q21
     Route: 042
     Dates: start: 2005
  8. CISPLATIN. [Suspect]
     Active Substance: CISPLATIN
     Indication: METASTASES TO LUNG
  9. GEMCITABINE. [Suspect]
     Active Substance: GEMCITABINE
     Indication: METASTASES TO LUNG
  10. GEMCITABINE. [Suspect]
     Active Substance: GEMCITABINE
     Indication: HUMAN CHORIONIC GONADOTROPIN INCREASED

REACTIONS (4)
  - Neutropenia [Unknown]
  - Testicular cancer metastatic [Recovered/Resolved]
  - Thrombocytopenia [Unknown]
  - Febrile neutropenia [Unknown]

NARRATIVE: CASE EVENT DATE: 2017
